FAERS Safety Report 5439295-4 (Version None)
Quarter: 2007Q3

REPORT INFORMATION
  Report Type: 
  Country: None (occurrence: None)
  Receive Date: 20070831
  Receipt Date: 20070823
  Transmission Date: 20080115
  Serious: Yes (Hospitalization, Other)
  Sender: FDA-Public Use
  Company Number: US-ELI_LILLY_AND_COMPANY-US200708005187

PATIENT
  Age: 59 Year
  Sex: Female
  Weight: 78.004 kg

DRUGS (4)
  1. BYETTA [Suspect]
     Indication: TYPE 2 DIABETES MELLITUS
     Dosage: 5 UG, 2/D
     Route: 058
     Dates: start: 20051201, end: 20060101
  2. BYETTA [Suspect]
     Dosage: 10 UG, 2/D
     Route: 058
     Dates: start: 20060101
  3. GLUCOPHAGE [Concomitant]
     Indication: DIABETES MELLITUS
     Dates: start: 19960101
  4. NITROGLYCERIN [Concomitant]
     Indication: GASTROOESOPHAGEAL REFLUX DISEASE

REACTIONS (7)
  - CYSTITIS [None]
  - GASTROINTESTINAL INFECTION [None]
  - KIDNEY INFECTION [None]
  - PNEUMONIA [None]
  - PYREXIA [None]
  - SALMONELLOSIS [None]
  - URINARY INCONTINENCE [None]
